FAERS Safety Report 9817374 (Version 1)
Quarter: 2014Q1

REPORT INFORMATION
  Report Type: Report from Study
  Country: US (occurrence: US)
  Receive Date: 20140115
  Receipt Date: 20140115
  Transmission Date: 20141002
  Serious: Yes (Death)
  Sender: FDA-Public Use
  Company Number: US-ROCHE-1333931

PATIENT
  Age: 34 Year
  Sex: Female
  Weight: 55.84 kg

DRUGS (10)
  1. AVASTIN [Suspect]
     Indication: OVARIAN CANCER
     Dosage: 15 MG/KG ON 05/NOV/2010
     Route: 042
     Dates: start: 20101105
  2. TAXOL [Concomitant]
     Route: 042
  3. TAXOL [Concomitant]
     Dosage: PAST THERAPY
     Route: 065
  4. CARBOPLATIN [Concomitant]
     Route: 042
  5. CARBOPLATIN [Concomitant]
     Dosage: PAST THERAPY
     Route: 065
  6. ZANTAC [Concomitant]
     Route: 042
  7. BENADRYL (UNITED STATES) [Concomitant]
     Route: 042
  8. ALOXI [Concomitant]
     Route: 042
  9. DECADRON [Concomitant]
     Dosage: TAKEN AT 2100 AND 0300
     Route: 065
     Dates: start: 20101105
  10. ONDANSETRON [Concomitant]
     Route: 065

REACTIONS (2)
  - Death [Fatal]
  - Disease progression [Unknown]
